FAERS Safety Report 9459452 (Version 4)
Quarter: 2013Q4

REPORT INFORMATION
  Report Type: Report from Study
  Country: CA (occurrence: BR)
  Receive Date: 20130815
  Receipt Date: 20131027
  Transmission Date: 20140711
  Serious: Yes (Hospitalization)
  Sender: FDA-Public Use
  Company Number: PHHY2013BR087793

PATIENT
  Age: 64 Year
  Sex: Female
  Weight: 80 kg

DRUGS (18)
  1. ACLASTA [Suspect]
     Indication: OSTEOPOROSIS
     Dosage: 5 MG, 1 APPLICATION ANNUALLY
     Route: 042
     Dates: start: 2010
  2. ACLASTA [Suspect]
     Dosage: 5 MG, 1 APPLICATION ANNUALLY
     Route: 042
     Dates: start: 201306
  3. CALCITRAL D [Concomitant]
     Dosage: UNK UKN, UNK
  4. DIOVAN HCT [Concomitant]
     Indication: BLOOD PRESSURE INCREASED
     Dosage: 1 DF, DAILY
     Dates: start: 201006
  5. JANUMET [Concomitant]
     Dosage: UNK UKN, UNK
     Dates: start: 2010
  6. MANIVASC [Concomitant]
     Dosage: UNK UKN, UNK
     Dates: start: 2010
  7. CILOSTAZOL [Concomitant]
     Dosage: UNK UKN, UNK
     Dates: start: 2010
  8. AAS [Concomitant]
     Dosage: UNK UKN, UNK
     Dates: start: 2010
  9. ALLOPURINOL [Concomitant]
     Dosage: UNK UKN, UNK
     Dates: start: 2010
  10. NEBILET [Concomitant]
     Dosage: UNK UKN, UNK
     Dates: start: 2010
  11. VYTORIN [Concomitant]
     Dosage: UNK UKN, UNK
     Dates: start: 2010
  12. ISOSORBIDE MONONITRATE [Concomitant]
     Dosage: UNK UKN, UNK
     Dates: start: 2010
  13. OMEGA 3 [Concomitant]
     Dosage: UNK UKN, UNK
     Dates: start: 2010
  14. NEXPRAZOLE [Concomitant]
     Dosage: UNK UKN, UNK
     Dates: start: 2010
  15. CALCIUM [Concomitant]
     Dosage: UNK UKN, UNK
     Dates: start: 2010
  16. CALCIUM D-500 [Concomitant]
     Indication: OSTEOPOROSIS
     Dosage: 1 DF, DAILY
     Route: 048
  17. ANTICHOLINERGICS [Concomitant]
     Dosage: UNK UKN, UNK
  18. ANTIHYPERTENSIVES [Concomitant]
     Dosage: UNK UKN, UNK

REACTIONS (12)
  - Coronary artery occlusion [Unknown]
  - Abasia [Recovered/Resolved]
  - Spinal pain [Not Recovered/Not Resolved]
  - Dysstasia [Recovered/Resolved]
  - Dry eye [Unknown]
  - Eye irritation [Unknown]
  - Eye pruritus [Unknown]
  - Insomnia [Unknown]
  - Pain in extremity [Unknown]
  - Pain [Unknown]
  - Back pain [Recovered/Resolved]
  - Osteoporosis [Unknown]
